FAERS Safety Report 12859686 (Version 2)
Quarter: 2019Q2

REPORT INFORMATION
  Report Type: Spontaneous
  Country: FR (occurrence: FR)
  Receive Date: 20161018
  Receipt Date: 20190425
  Transmission Date: 20190711
  Serious: Yes (Congenital Anomaly, Other)
  Sender: FDA-Public Use
  Company Number: FR-ABBVIE-16P-056-1755935-00

PATIENT
  Sex: Male

DRUGS (1)
  1. DEPAKINE [Suspect]
     Active Substance: VALPROATE SODIUM
     Indication: MATERNAL EXPOSURE TIMING UNSPECIFIED
     Route: 064

REACTIONS (17)
  - Aggression [Unknown]
  - Lordosis [Unknown]
  - Myopia [Not Recovered/Not Resolved]
  - Strabismus [Unknown]
  - Learning disability [Not Recovered/Not Resolved]
  - Hyperhidrosis [Not Recovered/Not Resolved]
  - Fine motor skill dysfunction [Unknown]
  - Kyphosis [Not Recovered/Not Resolved]
  - Congenital musculoskeletal anomaly [Not Recovered/Not Resolved]
  - Pectus excavatum [Not Recovered/Not Resolved]
  - Attention deficit/hyperactivity disorder [Not Recovered/Not Resolved]
  - Cryptorchism [Recovered/Resolved]
  - Talipes [Not Recovered/Not Resolved]
  - Astigmatism [Not Recovered/Not Resolved]
  - Supernumerary nipple [Not Recovered/Not Resolved]
  - Language disorder [Recovered/Resolved]
  - Foetal exposure during pregnancy [Unknown]

NARRATIVE: CASE EVENT DATE: 2008
